FAERS Safety Report 4808274-X (Version None)
Quarter: 2005Q4

REPORT INFORMATION
  Report Type: 
  Country: None (occurrence: None)
  Receive Date: 20051021
  Receipt Date: 20010705
  Transmission Date: 20060501
  Serious: Yes (Hospitalization)
  Sender: FDA-Public Use
  Company Number: EWC010727565

PATIENT
  Age: 44 Year
  Sex: Female

DRUGS (8)
  1. ZYPREXA [Suspect]
     Indication: SCHIZOPHRENIA
  2. FLUVOXAMINE MALEATE [Concomitant]
  3. COLCHICINE [Concomitant]
  4. PREDNISONE [Concomitant]
  5. PREVISCAN (FLUINDIONE) [Concomitant]
  6. FUROSEMIDE [Concomitant]
  7. CALCITE D [Concomitant]
  8. ACETAMINOPHEN [Concomitant]

REACTIONS (1)
  - PULMONARY EMBOLISM [None]
